FAERS Safety Report 22307738 (Version 1)
Quarter: 2023Q2

REPORT INFORMATION
  Report Type: Spontaneous
  Country: US (occurrence: None)
  Receive Date: 20230511
  Receipt Date: 20230511
  Transmission Date: 20230722
  Serious: No
  Sender: FDA-Public Use
  Company Number: US-ROCHE-3184069

PATIENT
  Sex: Female

DRUGS (1)
  1. OCREVUS [Suspect]
     Active Substance: OCRELIZUMAB
     Indication: Relapsing-remitting multiple sclerosis
     Route: 042
     Dates: start: 201904

REACTIONS (4)
  - Orthosis user [Not Recovered/Not Resolved]
  - Keratotomy [Not Recovered/Not Resolved]
  - Iris hamartoma [Not Recovered/Not Resolved]
  - Myopia [Not Recovered/Not Resolved]
